FAERS Safety Report 5499607-2 (Version None)
Quarter: 2007Q4

REPORT INFORMATION
  Report Type: 
  Country: None (occurrence: None)
  Receive Date: 20071026
  Receipt Date: 20071016
  Transmission Date: 20080405
  Serious: Yes (Other)
  Sender: FDA-Public Use
  Company Number: US-PFIZER INC-2007087796

PATIENT
  Sex: Female

DRUGS (1)
  1. GABAPENTIN [Suspect]

REACTIONS (4)
  - DIZZINESS [None]
  - ROAD TRAFFIC ACCIDENT [None]
  - VISION BLURRED [None]
  - WEIGHT INCREASED [None]
